FAERS Safety Report 18589019 (Version 5)
Quarter: 2021Q1

REPORT INFORMATION
  Report Type: Spontaneous
  Country: JP (occurrence: JP)
  Receive Date: 20201208
  Receipt Date: 20210331
  Transmission Date: 20210419
  Serious: Yes (Hospitalization, Disabling, Other)
  Sender: FDA-Public Use
  Company Number: JP-009507513-2011JPN004434J

PATIENT
  Age: 61 Year
  Sex: Female
  Weight: 56 kg

DRUGS (3)
  1. KEYTRUDA [Suspect]
     Active Substance: PEMBROLIZUMAB
     Indication: CLEAR CELL RENAL CELL CARCINOMA
     Dosage: 200 MILLIGRAM, Q3W
     Route: 041
     Dates: start: 20201016, end: 20201106
  2. AXITINIB [Suspect]
     Active Substance: AXITINIB
     Indication: CLEAR CELL RENAL CELL CARCINOMA
     Dosage: 10 MILLIGRAM, 7 X PER WEEK
     Route: 048
     Dates: start: 20201016, end: 20201127
  3. AXITINIB [Suspect]
     Active Substance: AXITINIB
     Dosage: 10 MILLIGRAM, 7 X PER WEEK
     Route: 048
     Dates: start: 20201225, end: 20210103

REACTIONS (4)
  - Immune-mediated hypothyroidism [Recovered/Resolved with Sequelae]
  - Haemophagocytic lymphohistiocytosis [Recovered/Resolved]
  - Thyroiditis [Recovered/Resolved with Sequelae]
  - Liver disorder [Recovered/Resolved]

NARRATIVE: CASE EVENT DATE: 20201106
